FAERS Safety Report 16370336 (Version 2)
Quarter: 2019Q2

REPORT INFORMATION
  Report Type: Spontaneous
  Country: DE (occurrence: DE)
  Receive Date: 20190530
  Receipt Date: 20190607
  Transmission Date: 20190711
  Serious: Yes (Life-Threatening, Hospitalization, Other)
  Sender: FDA-Public Use
  Company Number: DE-DRREDDYS-USA/GER/19/0110642

PATIENT
  Age: 62 Year
  Sex: Male

DRUGS (10)
  1. CARVEDILOL. [Concomitant]
     Active Substance: CARVEDILOL
     Dosage: ADEQUATE DOSAGES
  2. CLONIDINE. [Concomitant]
     Active Substance: CLONIDINE
     Dosage: ANTIHYPERTENSIVE THERAPY REGIMEN WAS INTENSIFIED
  3. RAMIPRIL. [Suspect]
     Active Substance: RAMIPRIL
     Dosage: ADEQUATE DOSAGES
  4. HYDROCHLOROTHIAZIDE. [Concomitant]
     Active Substance: HYDROCHLOROTHIAZIDE
     Dosage: ADEQUATE DOSAGES
  5. AMLODIPINE [Concomitant]
     Active Substance: AMLODIPINE BESYLATE
     Dosage: ANTIHYPERTENSIVE THERAPY REGIMEN WAS INTENSIFIED
  6. CARVEDILOL. [Concomitant]
     Active Substance: CARVEDILOL
     Indication: HYPERTENSION
     Dosage: ANTIHYPERTENSIVE THERAPY REGIMEN WAS INTENSIFIED
  7. AMLODIPINE [Concomitant]
     Active Substance: AMLODIPINE BESYLATE
     Indication: HYPERTENSION
     Dosage: ADEQUATE DOSAGES
  8. RAMIPRIL. [Suspect]
     Active Substance: RAMIPRIL
     Indication: HYPERTENSION
     Dosage: DOUBLING OF THE RAMIPRIL DOSE (ANTIHYPERTENSIVE THERAPY REGIMEN WAS INTENSIFIED)
  9. HYDROCHLOROTHIAZIDE. [Concomitant]
     Active Substance: HYDROCHLOROTHIAZIDE
     Indication: HYPERTENSION
     Dosage: ANTIHYPERTENSIVE THERAPY REGIMEN WAS INTENSIFIED
  10. CLONIDINE. [Concomitant]
     Active Substance: CLONIDINE
     Indication: HYPERTENSION
     Dosage: ADEQUATE DOSAGES

REACTIONS (2)
  - Renal impairment [Recovering/Resolving]
  - Condition aggravated [Recovering/Resolving]
